FAERS Safety Report 6230910-4 (Version None)
Quarter: 2009Q2

REPORT INFORMATION
  Report Type: 
  Country: None (occurrence: None)
  Receive Date: 20090616
  Receipt Date: 20090605
  Transmission Date: 20091009
  Serious: Yes (Other)
  Sender: FDA-Public Use
  Company Number: PHHY2008BR09068

PATIENT
  Age: 33 Year
  Sex: Female
  Weight: 83 kg

DRUGS (3)
  1. GLEEVEC [Suspect]
     Indication: CHRONIC MYELOID LEUKAEMIA
     Dosage: 400 MG, QD
     Route: 048
     Dates: start: 20080303
  2. CONTRACEPTIVES NOS [Concomitant]
  3. OMEPRAZOLE [Concomitant]
     Dosage: 1 TABLET DAILY

REACTIONS (5)
  - BLOOD CREATININE INCREASED [None]
  - HAEMATOCRIT DECREASED [None]
  - NEPHROLITHIASIS [None]
  - RED BLOOD CELL COUNT DECREASED [None]
  - RENAL COLIC [None]
